FAERS Safety Report 23155929 (Version 3)
Quarter: 2023Q4

REPORT INFORMATION
  Report Type: Report from Study
  Country: CL (occurrence: CL)
  Receive Date: 20231107
  Receipt Date: 20231107
  Transmission Date: 20240110
  Serious: Yes (Hospitalization)
  Sender: FDA-Public Use
  Company Number: CL-Eisai Medical Research-EC-2023-137214

PATIENT
  Age: 72 Year
  Sex: Female
  Weight: 50 kg

DRUGS (12)
  1. LENVATINIB [Suspect]
     Active Substance: LENVATINIB
     Indication: Endometrial cancer
     Route: 048
     Dates: start: 20230228, end: 20230319
  2. LENVATINIB [Suspect]
     Active Substance: LENVATINIB
     Route: 048
     Dates: start: 20230417, end: 20230503
  3. PEMBROLIZUMAB [Suspect]
     Active Substance: PEMBROLIZUMAB
     Indication: Endometrial cancer
     Route: 041
     Dates: start: 20230228, end: 20230228
  4. BELZUTIFAN [Suspect]
     Active Substance: BELZUTIFAN
     Indication: Endometrial cancer
     Route: 048
     Dates: start: 20230228, end: 20230323
  5. BELZUTIFAN [Suspect]
     Active Substance: BELZUTIFAN
     Route: 048
     Dates: start: 20230417, end: 20230503
  6. MEBEVERINE [Concomitant]
     Active Substance: MEBEVERINE
     Dates: start: 20221215
  7. OTILONIUM BROMIDE [Concomitant]
     Active Substance: OTILONIUM BROMIDE
     Dates: start: 20221215
  8. CELECOXIB [Concomitant]
     Active Substance: CELECOXIB
     Dates: start: 20230301
  9. LACTULOSE [Concomitant]
     Active Substance: LACTULOSE
     Dates: start: 20230308, end: 20230326
  10. CHLORPHENIRAMINE [Concomitant]
     Active Substance: CHLORPHENIRAMINE
     Dates: start: 20230313, end: 20230320
  11. UREA [Concomitant]
     Active Substance: UREA
     Dates: start: 20230313, end: 20230320
  12. SUNSCREEN [Concomitant]
     Active Substance: AVOBENZONE\OCTISALATE\OCTOCRYLENE
     Dates: start: 20230313, end: 20230320

REACTIONS (3)
  - Immune-mediated hepatitis [Recovered/Resolved]
  - Cholecystitis acute [Recovered/Resolved]
  - Cholestasis [Recovering/Resolving]

NARRATIVE: CASE EVENT DATE: 20230320
